FAERS Safety Report 4363568-X (Version None)
Quarter: 2004Q2

REPORT INFORMATION
  Report Type: 
  Country: None (occurrence: None)
  Receive Date: 20040524
  Receipt Date: 20040524
  Transmission Date: 20050107
  Serious: Yes (Hospitalization)
  Sender: FDA-Public Use
  Company Number: None

PATIENT
  Age: 81 Year
  Sex: Male
  Weight: 86.637 kg

DRUGS (8)
  1. PACLITAXEL [Suspect]
     Indication: LUNG NEOPLASM MALIGNANT
     Dosage: 95 MG
     Route: 042
     Dates: start: 20040315, end: 20040430
  2. IRESSA [Suspect]
     Indication: LUNG NEOPLASM MALIGNANT
     Dosage: 250 MG PO QD
     Route: 048
     Dates: start: 20040315, end: 20040430
  3. CARBOPLATIN [Suspect]
     Dosage: 190 MG IV WEEKLY X 5
  4. RITALIN [Concomitant]
  5. LIPITOR [Concomitant]
  6. ASPIRIN [Concomitant]
  7. PREVACID [Concomitant]
  8. ANAFRANIL [Concomitant]

REACTIONS (5)
  - BODY TEMPERATURE INCREASED [None]
  - FIBRIN D DIMER INCREASED [None]
  - GENERAL PHYSICAL HEALTH DETERIORATION [None]
  - OESOPHAGITIS [None]
  - PO2 DECREASED [None]
